FAERS Safety Report 18658122 (Version 1)
Quarter: 2020Q4

REPORT INFORMATION
  Report Type: Spontaneous
  Country: US (occurrence: US)
  Receive Date: 20201223
  Receipt Date: 20201223
  Transmission Date: 20210114
  Serious: Yes (Other)
  Sender: FDA-Public Use
  Company Number: US-TEVA-2020-US-1860970

PATIENT
  Sex: Male

DRUGS (2)
  1. ETOPOSIDE. [Suspect]
     Active Substance: ETOPOSIDE
     Dosage: LOW-DOSE MAINTENANCE THERAPY
     Route: 065
  2. ETOPOSIDE. [Suspect]
     Active Substance: ETOPOSIDE
     Indication: CHONDROMA
     Dosage: 500MG/M2 RECEIVED 14 CYCLES
     Route: 065

REACTIONS (1)
  - Acute myeloid leukaemia [Recovered/Resolved]
